FAERS Safety Report 6699392-2 (Version None)
Quarter: 2010Q2

REPORT INFORMATION
  Report Type: 
  Country: None (occurrence: None)
  Receive Date: 20100426
  Receipt Date: 20100412
  Transmission Date: 20101027
  Serious: Yes (Other)
  Sender: FDA-Public Use
  Company Number: 20100008USST

PATIENT
  Sex: Male

DRUGS (2)
  1. CARNITOR [Suspect]
     Indication: HYPERAMMONAEMIC ENCEPHALOPATHY
     Dosage: 330MG, BID, ORAL
     Route: 048
  2. DEPAKENE [Concomitant]

REACTIONS (1)
  - OEDEMA PERIPHERAL [None]
